FAERS Safety Report 4994742-7 (Version None)
Quarter: 2006Q2

REPORT INFORMATION
  Report Type: 
  Country: None (occurrence: None)
  Receive Date: 20060505
  Receipt Date: 20060425
  Transmission Date: 20061013
  Serious: Yes (Death, Other)
  Sender: FDA-Public Use
  Company Number: GB-ABBOTT-06P-167-0332237-00

PATIENT
  Age: 33 Year
  Sex: Female

DRUGS (4)
  1. CYCLOSPORINE [Suspect]
     Indication: IMMUNOSUPPRESSION
  2. PREDNISOLONE [Concomitant]
     Indication: IMMUNOSUPPRESSION
  3. PREDNISOLONE [Concomitant]
  4. AZATHIOPRINE [Concomitant]
     Indication: IMMUNOSUPPRESSION

REACTIONS (2)
  - ANAPLASTIC LARGE CELL LYMPHOMA T- AND NULL-CELL TYPES [None]
  - LYMPHOPROLIFERATIVE DISORDER [None]
